FAERS Safety Report 9196262 (Version 1)
Quarter: 2013Q1

REPORT INFORMATION
  Report Type: Spontaneous
  Country: US (occurrence: None)
  Receive Date: 20120709
  Receipt Date: 20120709
  Transmission Date: 20140127
  Serious: No
  Sender: FDA-Public Use
  Company Number: 2012HGS-003664

PATIENT
  Age: 66 Year
  Sex: Female
  Weight: 65.77 kg

DRUGS (10)
  1. BENLYSTA [Suspect]
     Indication: SYSTEMIC LUPUS ERYTHEMATOSUS
     Dosage: 1 IN 28 D, INTRAVENOUS DRIP
     Route: 041
     Dates: start: 20120509
  2. METHYLPREDNISOLONE (METHYLPREDNISOLONE) (METHYLPREDNISOLONE) [Concomitant]
  3. METHOTREXATE (METHOTREXATE) (METHOTREXATE) [Concomitant]
  4. SOMA (CARISOPRODOL) (CARISOPRODOL) [Concomitant]
  5. (LISINOPRIL (LISINOPRIL) (LISINOPRIL) [Concomitant]
  6. TRAVATAN (TRAVOPROST) (TRAVOPROST) [Concomitant]
  7. AZASITE (AZITHROMYCIN) (AZITHROMYCIN) [Concomitant]
  8. SYSTANE [Concomitant]
  9. VOLTAREN [Concomitant]
  10. OMEPRAZOLE (OMEPRAZOLE) (OMEPRAZOLE) [Concomitant]

REACTIONS (6)
  - Pain [None]
  - Feeling hot [None]
  - Anxiety [None]
  - Insomnia [None]
  - Depressed mood [None]
  - Crying [None]
